FAERS Safety Report 19416355 (Version 1)
Quarter: 2021Q2

REPORT INFORMATION
  Report Type: Spontaneous
  Country: US (occurrence: US)
  Receive Date: 20210615
  Receipt Date: 20210615
  Transmission Date: 20210717
  Serious: No
  Sender: FDA-Public Use
  Company Number: US-ALLERGAN-2112192US

PATIENT
  Age: 47 Year
  Sex: Female

DRUGS (2)
  1. KYBELLA [Suspect]
     Active Substance: DEOXYCHOLIC ACID
     Indication: PRODUCT USED FOR UNKNOWN INDICATION
     Dosage: 4 VIALS, SINGLE
     Route: 058
     Dates: start: 20210318, end: 20210318
  2. KYBELLA [Suspect]
     Active Substance: DEOXYCHOLIC ACID
     Dosage: 4 VIALS, SINGLE
     Route: 058
     Dates: start: 20210318, end: 20210318

REACTIONS (2)
  - Swelling [Unknown]
  - Facial paresis [Unknown]

NARRATIVE: CASE EVENT DATE: 20210318
